FAERS Safety Report 6980220-2 (Version None)
Quarter: 2010Q3

REPORT INFORMATION
  Report Type: 
  Country: None (occurrence: None)
  Receive Date: 20100914
  Receipt Date: 20100909
  Transmission Date: 20110219
  Serious: Yes (Death, Life-Threatening, Hospitalization)
  Sender: FDA-Public Use
  Company Number: US-ROCHE-668570

PATIENT
  Sex: Female

DRUGS (12)
  1. BEVACIZUMAB [Suspect]
     Dosage: 15 MG/KG, Q21D, CYCLE 13, OVER 30-90 MINUTES ON DAY 1
     Route: 042
     Dates: start: 20090313, end: 20091218
  2. OCTREOTIDE ACETATE [Suspect]
     Dosage: 100 UG, X1 CYCLE 1 DAY 1, LAST DATE OF DOSE PRIOR TO SAE: 08 JANUARY 2010
     Route: 058
     Dates: end: 20100108
  3. SANDOSTATIN LAR [Suspect]
     Dosage: 20 MG, Q21D
     Route: 030
     Dates: start: 20090313
  4. CARTIA XT [Concomitant]
  5. MORPHINE [Concomitant]
  6. LACTULOSE [Concomitant]
  7. OXYCODONE [Concomitant]
  8. CITALOPRAM HYDROBROMIDE [Concomitant]
  9. PERI-COLACE [Concomitant]
  10. PLAVIX [Concomitant]
  11. LISINOPRIL [Concomitant]
  12. MEGESTROL [Concomitant]

REACTIONS (7)
  - ABDOMINAL DISTENSION [None]
  - ASPIRATION [None]
  - DEEP VEIN THROMBOSIS [None]
  - DISEASE PROGRESSION [None]
  - HYPOGLYCAEMIA [None]
  - RESPIRATORY ARREST [None]
  - SMALL INTESTINAL OBSTRUCTION [None]
